FAERS Safety Report 20139661 (Version 1)
Quarter: 2021Q4

REPORT INFORMATION
  Report Type: Other
  Country: CA (occurrence: CA)
  Receive Date: 20211202
  Receipt Date: 20211202
  Transmission Date: 20220303
  Serious: Yes (Other)
  Sender: FDA-Public Use
  Company Number: CA-APOTEX-2021AP045908

PATIENT
  Age: 52 Year
  Sex: Male

DRUGS (6)
  1. MYCOPHENOLATE MOFETIL [Suspect]
     Active Substance: MYCOPHENOLATE MOFETIL
     Indication: Product used for unknown indication
     Dosage: UNK
     Route: 065
  2. PREDNISONE [Suspect]
     Active Substance: PREDNISONE
     Indication: Product used for unknown indication
     Dosage: 20 MILLIGRAM, QD
     Route: 065
  3. PREDNISONE [Suspect]
     Active Substance: PREDNISONE
     Dosage: 50 MILLIGRAM, QD
     Route: 065
  4. MYCOPHENOLATE SODIUM [Suspect]
     Active Substance: MYCOPHENOLATE SODIUM
     Indication: Product used for unknown indication
     Dosage: 720 MILLIGRAM, BID
     Route: 065
  5. MYCOPHENOLATE SODIUM [Suspect]
     Active Substance: MYCOPHENOLATE SODIUM
     Dosage: 1080 MILLIGRAM, BID
     Route: 065
  6. HYDROXYCHLOROQUINE [Concomitant]
     Active Substance: HYDROXYCHLOROQUINE
     Indication: Product used for unknown indication
     Dosage: 400 MILLIGRAM, QD
     Route: 065

REACTIONS (18)
  - Arthritis [Unknown]
  - Deep vein thrombosis [Unknown]
  - Drug dependence [Unknown]
  - Drug intolerance [Unknown]
  - Raynaud^s phenomenon [Unknown]
  - Splinter haemorrhages [Unknown]
  - Tendon rupture [Unknown]
  - Ill-defined disorder [Unknown]
  - Lupus nephritis [Unknown]
  - Mucosal ulceration [Unknown]
  - Osteopenia [Unknown]
  - Pleurisy [Unknown]
  - Proteinuria [Unknown]
  - Vasculitis [Unknown]
  - Weight decreased [Unknown]
  - Haematuria [Unknown]
  - Anaemia [Unknown]
  - Headache [Unknown]
